FAERS Safety Report 14956399 (Version 1)
Quarter: 2018Q2

REPORT INFORMATION
  Report Type: Spontaneous
  Country: US (occurrence: US)
  Receive Date: 20180531
  Receipt Date: 20180531
  Transmission Date: 20180711
  Serious: No
  Sender: FDA-Public Use
  Company Number: US-NOVEN PHARMACEUTICALS, INC.-US2017000865

PATIENT

DRUGS (2)
  1. ZOLOFT [Concomitant]
     Active Substance: SERTRALINE HYDROCHLORIDE
     Indication: ANXIETY
  2. DAYTRANA [Suspect]
     Active Substance: METHYLPHENIDATE
     Indication: PRODUCT USED FOR UNKNOWN INDICATION
     Dosage: 20 MG, UNKNOWN
     Route: 062
     Dates: start: 201702, end: 201706

REACTIONS (13)
  - Agitation [Recovered/Resolved]
  - Therapy cessation [Not Recovered/Not Resolved]
  - Product administered at inappropriate site [Recovered/Resolved]
  - Aggression [Recovered/Resolved]
  - Application site erythema [Recovered/Resolved]
  - Application site swelling [Recovered/Resolved]
  - Abnormal behaviour [Recovered/Resolved]
  - Application site warmth [Recovered/Resolved]
  - Product adhesion issue [Recovered/Resolved]
  - Drug prescribing error [Unknown]
  - Bruxism [Recovered/Resolved]
  - Application site pruritus [Recovered/Resolved]
  - Defiant behaviour [Recovered/Resolved]

NARRATIVE: CASE EVENT DATE: 2017
